FAERS Safety Report 9829326 (Version 2)
Quarter: 2014Q1

REPORT INFORMATION
  Report Type: Spontaneous
  Country: JP (occurrence: JP)
  Receive Date: 20140120
  Receipt Date: 20140218
  Transmission Date: 20141002
  Serious: Yes (Other)
  Sender: FDA-Public Use
  Company Number: JP-AMGEN-JPNSP2014003429

PATIENT
  Age: 73 Year
  Sex: Male
  Weight: 57 kg

DRUGS (2)
  1. RANMARK [Suspect]
     Indication: METASTASES TO BONE
     Route: 058
     Dates: start: 20131219, end: 20131219
  2. SUTENT [Concomitant]
     Route: 048
     Dates: start: 20131212, end: 20131220

REACTIONS (1)
  - Pyrexia [Recovering/Resolving]
